FAERS Safety Report 19718233 (Version 1)
Quarter: 2021Q3

REPORT INFORMATION
  Report Type: Spontaneous
  Country: JP (occurrence: JP)
  Receive Date: 20210819
  Receipt Date: 20210819
  Transmission Date: 20211014
  Serious: Yes (Death, Other)
  Sender: FDA-Public Use
  Company Number: JP-BRISTOL-MYERS SQUIBB COMPANY-BMS-2021-080350

PATIENT
  Age: 14 Year
  Sex: Male
  Weight: 50 kg

DRUGS (2)
  1. RASURITEK [Concomitant]
     Active Substance: RASBURICASE
     Indication: CHRONIC MYELOID LEUKAEMIA
     Route: 065
  2. HYDREA [Suspect]
     Active Substance: HYDROXYUREA
     Indication: CHRONIC MYELOID LEUKAEMIA
     Dosage: 1000 MG/DOSE (20 MG/KG/DOSE) 3 TIMES DAILY
     Route: 065

REACTIONS (1)
  - Tumour lysis syndrome [Fatal]
